FAERS Safety Report 7685328-4 (Version None)
Quarter: 2011Q3

REPORT INFORMATION
  Report Type: 
  Country: None (occurrence: None)
  Receive Date: 20110803
  Receipt Date: 20110727
  Transmission Date: 20111222
  Serious: No
  Sender: FDA-Public Use
  Company Number: AECAN201100123

PATIENT
  Age: 49 Year
  Sex: Female

DRUGS (1)
  1. ALBUMIN (HUMAN) [Suspect]
     Indication: PRODUCT USED FOR UNKNOWN INDICATION
     Dosage: 100 ML;IV
     Route: 042
     Dates: start: 19960605, end: 19960605

REACTIONS (1)
  - HEPATITIS C ANTIBODY POSITIVE [None]
